FAERS Safety Report 8167691-3 (Version None)
Quarter: 2012Q1

REPORT INFORMATION
  Report Type: 
  Country: None (occurrence: None)
  Receive Date: 20120227
  Receipt Date: 20120214
  Transmission Date: 20120608
  Serious: Yes (Life-Threatening)
  Sender: FDA-Public Use
  Company Number: JP-SANOFI-AVENTIS-2012SA011767

PATIENT
  Age: 40 Year
  Sex: Male

DRUGS (4)
  1. ZOLPIDEM [Suspect]
     Indication: SUICIDE ATTEMPT
     Route: 048
     Dates: start: 20120101, end: 20120101
  2. AMARYL [Suspect]
     Indication: SUICIDE ATTEMPT
     Route: 048
     Dates: start: 20120101, end: 20120101
  3. JANUVIA [Concomitant]
     Route: 048
     Dates: start: 20111231
  4. MIGLITOL [Concomitant]
     Route: 048
     Dates: start: 20111231

REACTIONS (3)
  - MULTIPLE DRUG OVERDOSE INTENTIONAL [None]
  - CARDIOMYOPATHY [None]
  - HYPOGLYCAEMIA [None]
